FAERS Safety Report 7845585 (Version 4)
Quarter: 2014Q3

REPORT INFORMATION
  Report Type: Spontaneous
  Country: US (occurrence: US)
  Receive Date: 20110308
  Receipt Date: 20140710
  Transmission Date: 20150326
  Serious: Yes (Hospitalization, Other)
  Sender: FDA-Public Use
  Company Number: US-BAYER-2011-019275

PATIENT
  Age: 29 Year
  Sex: Female
  Weight: 66 kg

DRUGS (1)
  1. MIRENA [Suspect]
     Active Substance: LEVONORGESTREL
     Indication: CONTRACEPTION
     Dosage: 20 MCG/24HR, CONT
     Route: 015
     Dates: start: 20080612, end: 20101215

REACTIONS (13)
  - Uterine perforation [None]
  - Device dislocation [None]
  - Pelvic pain [None]
  - Embedded device [None]
  - Pyrexia [None]
  - Injury [None]
  - Affect lability [None]
  - Genital haemorrhage [None]
  - Emotional distress [None]
  - Anxiety [None]
  - Vomiting [None]
  - Depression suicidal [None]
  - Abdominal pain [None]

NARRATIVE: CASE EVENT DATE: 201002
